FAERS Safety Report 8144681-8 (Version None)
Quarter: 2012Q1

REPORT INFORMATION
  Report Type: 
  Country: None (occurrence: None)
  Receive Date: 20120217
  Receipt Date: 20120203
  Transmission Date: 20120608
  Serious: Yes (Hospitalization, Other)
  Sender: FDA-Public Use
  Company Number: JP-WATSON-2012-02543

PATIENT
  Age: 15 Year
  Sex: Male

DRUGS (3)
  1. LAMOTRIGINE [Suspect]
     Indication: PARTIAL SEIZURES
     Dosage: 50 MG EVERY DAY
  2. LAMOTRIGINE [Suspect]
     Dosage: 25 MG EVERY DAY
  3. LAMOTRIGINE [Suspect]
     Dosage: 25 MG EVERY OTHER DAY

REACTIONS (3)
  - INSOMNIA [None]
  - PARASOMNIA [None]
  - GRAND MAL CONVULSION [None]
